FAERS Safety Report 10022184 (Version 1)
Quarter: 2014Q1

REPORT INFORMATION
  Report Type: Spontaneous
  Country: JP (occurrence: JP)
  Receive Date: 20140319
  Receipt Date: 20140319
  Transmission Date: 20141002
  Serious: Yes (Other)
  Sender: FDA-Public Use
  Company Number: JP-GLAXOSMITHKLINE-B0976869A

PATIENT
  Age: 81 Year
  Sex: Male

DRUGS (4)
  1. AVOLVE [Suspect]
     Indication: BENIGN PROSTATIC HYPERPLASIA
     Dosage: .5MG PER DAY
     Route: 048
     Dates: start: 201009
  2. FLIVAS [Concomitant]
     Dosage: 2.5MG PER DAY
     Route: 048
  3. FUROSEMIDE [Concomitant]
     Dosage: 10MG PER DAY
     Route: 065
  4. ASPIRIN [Concomitant]
     Dosage: 40.5MG PER DAY
     Route: 048

REACTIONS (3)
  - Loss of consciousness [Unknown]
  - Bradycardia [Unknown]
  - Blood pressure decreased [Unknown]
